FAERS Safety Report 5405827-5 (Version None)
Quarter: 2007Q3

REPORT INFORMATION
  Report Type: 
  Country: None (occurrence: None)
  Receive Date: 20070802
  Receipt Date: 20070723
  Transmission Date: 20080115
  Serious: Yes (Other)
  Sender: FDA-Public Use
  Company Number: 07H-163-0312945-00

PATIENT
  Age: 31 Year
  Sex: Female
  Weight: 86 kg

DRUGS (4)
  1. MANNITOL INJETION (MANNITOL) (MANNITOL) [Suspect]
     Indication: INTRACRANIAL PRESSURE INCREASED
     Dosage: 40 GM, SLOW IV
     Route: 042
  2. MIDAZOLAM HCL [Concomitant]
  3. OXYGEN (OXYGEN) [Concomitant]
  4. PROPOFOL [Concomitant]

REACTIONS (3)
  - ELECTROCARDIOGRAM T WAVE PEAKED [None]
  - HYPERKALAEMIA [None]
  - HYPONATRAEMIA [None]
